FAERS Safety Report 8326705-8 (Version None)
Quarter: 2012Q2

REPORT INFORMATION
  Report Type: 
  Country: None (occurrence: None)
  Receive Date: 20120501
  Receipt Date: 20120420
  Transmission Date: 20120825
  Serious: Yes (Hospitalization)
  Sender: FDA-Public Use
  Company Number: JP-VERTEX PHARMACEUTICALS INC.-AE-2012-005993

PATIENT
  Age: 63 Year
  Sex: Female

DRUGS (3)
  1. RIBAVIRIN [Concomitant]
     Route: 048
     Dates: start: 20120409
  2. PEGINTERFERON ALFA-2B [Concomitant]
     Route: 051
     Dates: start: 20120409
  3. TELAVIC (TELAPREVIR) [Suspect]
     Route: 048
     Dates: start: 20120409

REACTIONS (4)
  - RASH [None]
  - ERYTHEMA [None]
  - PRURITUS [None]
  - PYREXIA [None]
